FAERS Safety Report 4519673-8 (Version None)
Quarter: 2004Q4

REPORT INFORMATION
  Report Type: 
  Country: None (occurrence: None)
  Receive Date: 20041206
  Receipt Date: 20041122
  Transmission Date: 20050328
  Serious: Yes (Other)
  Sender: FDA-Public Use
  Company Number: PHBS2004AR15965

PATIENT
  Age: 83 Year
  Sex: Male

DRUGS (1)
  1. EXELON [Suspect]
     Indication: CEREBRAL INFARCTION
     Dosage: 1.5 MG, QD
     Route: 065
     Dates: start: 20041119, end: 20041121

REACTIONS (5)
  - DEPRESSED LEVEL OF CONSCIOUSNESS [None]
  - ENURESIS [None]
  - LOSS OF CONSCIOUSNESS [None]
  - SEDATION [None]
  - URINARY INCONTINENCE [None]
